FAERS Safety Report 18893639 (Version 2)
Quarter: 2021Q1

REPORT INFORMATION
  Report Type: Spontaneous
  Country: US (occurrence: US)
  Receive Date: 20210215
  Receipt Date: 20210218
  Transmission Date: 20210420
  Serious: No
  Sender: FDA-Public Use
  Company Number: US-PFIZER INC-2020254105

PATIENT
  Age: 57 Year
  Sex: Female

DRUGS (1)
  1. LYRICA [Suspect]
     Active Substance: PREGABALIN
     Indication: PAIN
     Dosage: UNK

REACTIONS (6)
  - COVID-19 [Unknown]
  - Feeling abnormal [Unknown]
  - Pain [Unknown]
  - Gait disturbance [Unknown]
  - Neuralgia [Unknown]
  - Burning sensation [Unknown]

NARRATIVE: CASE EVENT DATE: 2021
